FAERS Safety Report 19802800 (Version 2)
Quarter: 2021Q3

REPORT INFORMATION
  Report Type: Spontaneous
  Country: GB (occurrence: GB)
  Receive Date: 20210908
  Receipt Date: 20210917
  Transmission Date: 20211014
  Serious: Yes (Other)
  Sender: FDA-Public Use
  Company Number: NVSC2021GB191912

PATIENT
  Sex: Male

DRUGS (3)
  1. ZARZIO [Suspect]
     Active Substance: FILGRASTIM
     Indication: PRODUCT USED FOR UNKNOWN INDICATION
     Dosage: 900 UG (4 DAYS) (STRENGTH 900 UG)
     Route: 065
  2. ZARZIO [Suspect]
     Active Substance: FILGRASTIM
     Dosage: 900 UG (STRENGTH 300 UG)
     Route: 065
     Dates: start: 20210820
  3. ZARZIO [Suspect]
     Active Substance: FILGRASTIM
     Dosage: 900 UG (4 DAYS) (STRENGTH 900 UG)
     Route: 065

REACTIONS (4)
  - Haemorrhage [Unknown]
  - Pain [Unknown]
  - Fatigue [Unknown]
  - Skin laceration [Unknown]
